FAERS Safety Report 9428759 (Version 1)
Quarter: 2013Q3

REPORT INFORMATION
  Report Type: Report from Study
  Country: US (occurrence: US)
  Receive Date: 20130730
  Receipt Date: 20130730
  Transmission Date: 20140515
  Serious: No
  Sender: FDA-Public Use
  Company Number: US-ABBOTT-12P-163-1027208-00

PATIENT
  Sex: Male
  Weight: 90.8 kg

DRUGS (5)
  1. ASA [Concomitant]
     Indication: PRODUCT USED FOR UNKNOWN INDICATION
  2. NIASPAN (COATED) [Suspect]
     Indication: BLOOD CHOLESTEROL INCREASED
     Dosage: AT BED TIME
  3. ZETIA [Concomitant]
     Indication: PRODUCT USED FOR UNKNOWN INDICATION
  4. TERAZOSIN [Concomitant]
     Indication: URINARY TRACT DISORDER
  5. CLONAZEPAM [Concomitant]
     Indication: SLEEP DISORDER

REACTIONS (7)
  - Overdose [Recovered/Resolved]
  - Visual impairment [Unknown]
  - Sleep disorder [Unknown]
  - Incorrect dose administered [Unknown]
  - Stress [Unknown]
  - Migraine [Not Recovered/Not Resolved]
  - Flushing [Unknown]
